FAERS Safety Report 25957532 (Version 2)
Quarter: 2025Q4

REPORT INFORMATION
  Report Type: Spontaneous
  Country: US (occurrence: US)
  Receive Date: 20251024
  Receipt Date: 20251107
  Transmission Date: 20260118
  Serious: Yes (Other)
  Sender: FRESENIUS KABI
  Company Number: US-FreseniusKabi-FK202514110

PATIENT
  Age: 72 Year
  Sex: Male
  Weight: 101.9 kg

DRUGS (16)
  1. HEPARIN SODIUM [Suspect]
     Active Substance: HEPARIN SODIUM
     Indication: Product used for unknown indication
     Dosage: INJECTION?41,000 UNITS HEPARIN GIVEN DURING PROCEDURE. HEPARIN TITRATED TO KEEP ACT } 480. ?WHEN REP
  2. PROTAMINE SULFATE [Suspect]
     Active Substance: PROTAMINE SULFATE
     Indication: Procoagulant therapy
     Dosage: AT 10:46 (OR)?GIVEN DURING THE PROCEDURE?6133716 AND 6134090, BUT IT IS NOT KNOWN IF THIS IS THE SAM
  3. PROTAMINE SULFATE [Suspect]
     Active Substance: PROTAMINE SULFATE
     Dosage: AT 10:48 (OR)?GIVEN DURING THE PROCEDURE?6133716 AND 6134090, BUT IT IS NOT KNOWN IF THIS IS THE SAM
  4. PROTAMINE SULFATE [Suspect]
     Active Substance: PROTAMINE SULFATE
     Dosage: AT 10:50 (OR)?GIVEN DURING THE PROCEDURE?6133716 AND 6134090, BUT IT IS NOT KNOWN IF THIS IS THE SAM
  5. PROTAMINE SULFATE [Suspect]
     Active Substance: PROTAMINE SULFATE
     Dosage: AT 10:52 (OR)?GIVEN DURING THE PROCEDURE?6133716 AND 6134090, BUT IT IS NOT KNOWN IF THIS IS THE SAM
  6. PROTAMINE SULFATE [Suspect]
     Active Substance: PROTAMINE SULFATE
     Dosage: AT 11:15 (OR)?GIVEN DURING THE PROCEDURE?6133716 AND 6134090, BUT IT IS NOT KNOWN IF THIS IS THE SAM
  7. PROTAMINE SULFATE [Suspect]
     Active Substance: PROTAMINE SULFATE
     Dosage: ADDITIONAL 25MG PROTAMINE GIVEN POST-OP IN ICU, 13:19 (ICU)?6133716 AND 6134090, BUT IT IS NOT KNOWN
  8. ALTACE [Concomitant]
     Active Substance: RAMIPRIL
     Indication: Product used for unknown indication
  9. AMLODIPINE [Concomitant]
     Active Substance: AMLODIPINE BESYLATE
     Indication: Product used for unknown indication
  10. ASPIRIN [Concomitant]
     Active Substance: ASPIRIN
     Indication: Product used for unknown indication
  11. ATORVASTATIN [Concomitant]
     Active Substance: ATORVASTATIN
     Indication: Product used for unknown indication
  12. FAMOTIDINE [Concomitant]
     Active Substance: FAMOTIDINE
     Indication: Product used for unknown indication
  13. METFORMIN [Concomitant]
     Active Substance: METFORMIN HYDROCHLORIDE
     Indication: Product used for unknown indication
  14. MOUNJARO [Concomitant]
     Active Substance: TIRZEPATIDE
     Indication: Product used for unknown indication
  15. TAMSULOSIN [Concomitant]
     Active Substance: TAMSULOSIN
     Indication: Product used for unknown indication
  16. TESTOSTERONE [Concomitant]
     Active Substance: TESTOSTERONE
     Indication: Product used for unknown indication

REACTIONS (3)
  - Post procedural haemorrhage [Unknown]
  - Coagulopathy [Unknown]
  - Blood loss anaemia [Unknown]
